FAERS Safety Report 8902094 (Version 1)
Quarter: 2012Q4

REPORT INFORMATION
  Report Type: 
  Country: SE (occurrence: SE)
  Receive Date: 20121112
  Receipt Date: 20121112
  Transmission Date: 20130627
  Serious: Yes (Hospitalization)
  Sender: FDA-Public Use
  Company Number: SE-PFIZER INC-2012278698

PATIENT
  Age: 59 Year
  Sex: Female
  Weight: 67.5 kg

DRUGS (9)
  1. GENOTROPIN [Suspect]
     Indication: GROWTH HORMONE DEFICIENCY
     Dosage: 0.4 mg, 1x/day, 7 injections/week
     Route: 058
     Dates: start: 20040505
  2. DESMOPRESSIN [Concomitant]
     Indication: BLOOD ANTIDIURETIC HORMONE DECREASED
     Dosage: UNK
     Dates: start: 19940101
  3. DIVIGEL [Concomitant]
     Indication: BLOOD LUTEINISING HORMONE DECREASED
     Dosage: UNK
     Dates: start: 19981229
  4. DIVIGEL [Concomitant]
     Indication: BLOOD FOLLICLE STIMULATING HORMONE DECREASED
  5. DIVIGEL [Concomitant]
     Indication: HYPOGONADISM FEMALE
  6. FOLLISTREL [Concomitant]
     Indication: BIRTH CONTROL
     Dosage: UNK
     Dates: start: 19881101
  7. CORTISONE ACETATE [Concomitant]
     Indication: BLOOD CORTICOTROPHIN DECREASED
     Dosage: UNK
     Dates: start: 19821101
  8. FLORINEF [Concomitant]
     Indication: MINERALOCORTICOID DEFICIENCY
     Dosage: UNK
     Dates: start: 20091028
  9. LEVOTHYROXINE [Concomitant]
     Indication: HYPOTHYROIDISM
     Dosage: UNK
     Dates: start: 20091028

REACTIONS (1)
  - Gastroenteritis viral [Unknown]
